FAERS Safety Report 7443375-1 (Version None)
Quarter: 2011Q2

REPORT INFORMATION
  Report Type: 
  Country: None (occurrence: None)
  Receive Date: 20110428
  Receipt Date: 20110413
  Transmission Date: 20111010
  Serious: Yes (Other)
  Sender: FDA-Public Use
  Company Number: US-BAYER-2011-032716

PATIENT
  Sex: Female

DRUGS (2)
  1. MIRENA [Suspect]
     Indication: CONTRACEPTION
     Dosage: 20 ?G, CONT
     Route: 015
     Dates: start: 20050801, end: 20101101
  2. MIRENA [Suspect]
     Dosage: UNK
     Dates: start: 20110407

REACTIONS (2)
  - UTERINE PERFORATION [None]
  - COMPLICATION OF DEVICE INSERTION [None]
